FAERS Safety Report 9990675 (Version 1)
Quarter: 2014Q1

REPORT INFORMATION
  Report Type: Spontaneous
  Country: US (occurrence: US)
  Receive Date: 20140310
  Receipt Date: 20140310
  Transmission Date: 20141002
  Serious: No
  Sender: FDA-Public Use
  Company Number: US-ABBVIE-13P-163-1134625-00

PATIENT
  Age: 20 Year
  Sex: Female
  Weight: 45.4 kg

DRUGS (1)
  1. HUMIRA [Suspect]
     Indication: PSORIASIS
     Route: 058
     Dates: start: 201110, end: 201208

REACTIONS (2)
  - Prolonged labour [Recovered/Resolved]
  - Bacterial infection [Recovered/Resolved]
